FAERS Safety Report 6809386-1 (Version None)
Quarter: 2010Q2

REPORT INFORMATION
  Report Type: 
  Country: None (occurrence: None)
  Receive Date: 20100630
  Receipt Date: 20100630
  Transmission Date: 20101027
  Serious: Yes (Hospitalization)
  Sender: FDA-Public Use
  Company Number: None

PATIENT
  Age: 6 Year
  Sex: Male
  Weight: 21.3191 kg

DRUGS (1)
  1. CHILDREN'S MOTRIN [Suspect]
     Indication: PAIN IN EXTREMITY
     Dosage: 2 TSP GIVEN ONCE PO
     Route: 048
     Dates: start: 20100622, end: 20100622

REACTIONS (5)
  - APHASIA [None]
  - DYSARTHRIA [None]
  - FACIAL PALSY [None]
  - MUSCLE TWITCHING [None]
  - PRODUCT QUALITY ISSUE [None]
